FAERS Safety Report 7703254-9 (Version None)
Quarter: 2011Q3

REPORT INFORMATION
  Report Type: 
  Country: None (occurrence: None)
  Receive Date: 20110817
  Receipt Date: 20110808
  Transmission Date: 20111222
  Serious: Yes (Other)
  Sender: FDA-Public Use
  Company Number: WAES 1108ESP00014

PATIENT
  Age: 44 Year
  Sex: Female

DRUGS (4)
  1. FOSAMAX [Suspect]
     Indication: PRODUCT USED FOR UNKNOWN INDICATION
     Dosage: 70 MG/WKY
     Route: 048
  2. CALCIUM (UNSPECIFIED) [Concomitant]
  3. VITAMIN D (UNSPECIFIED) [Concomitant]
  4. CORTICOSTEROIDS (UNSPECIFIED) [Suspect]

REACTIONS (6)
  - FRACTURED ISCHIUM [None]
  - PUBIS FRACTURE [None]
  - FRACTURED SACRUM [None]
  - LUMBAR VERTEBRAL FRACTURE [None]
  - STRESS FRACTURE [None]
  - THORACIC VERTEBRAL FRACTURE [None]
